FAERS Safety Report 7639700 (Version 5)
Quarter: 2021Q1

REPORT INFORMATION
  Report Type: Report from Study
  Country: FR (occurrence: FR)
  Receive Date: 20101026
  Receipt Date: 20210122
  Transmission Date: 20210420
  Serious: Yes (Hospitalization, Other)
  Sender: FDA-Public Use
  Company Number: FR-SHIRE-SPV1-2010-01805

PATIENT

DRUGS (20)
  1. IDURSULFASE [Suspect]
     Active Substance: IDURSULFASE
     Indication: MUCOPOLYSACCHARIDOSIS II
     Dosage: 0.55 MG/KG, 1X/WEEK
     Route: 041
     Dates: start: 20090907
  2. AERIUS [EBASTINE] [Concomitant]
     Active Substance: EBASTINE
     Dosage: UNK
     Route: 048
     Dates: start: 20140213, end: 20140228
  3. OFLOCET [OFLOXACIN HYDROCHLORIDE] [Concomitant]
     Active Substance: OFLOXACIN
     Indication: PAIN
     Dosage: UNK
     Route: 048
     Dates: start: 20140422, end: 20140429
  4. SOLU?MEDROL [Concomitant]
     Active Substance: METHYLPREDNISOLONE SODIUM SUCCINATE
     Dosage: UNK
     Route: 048
     Dates: start: 20091102
  5. OFLOCET [OFLOXACIN HYDROCHLORIDE] [Concomitant]
     Active Substance: OFLOXACIN
     Indication: OTORRHOEA
     Dosage: UNK
     Route: 050
     Dates: start: 20160208, end: 20160215
  6. SINGULAIR [Concomitant]
     Active Substance: MONTELUKAST SODIUM
     Indication: RESPIRATORY DISORDER
     Dosage: UNK
     Route: 048
     Dates: start: 20131021, end: 20150513
  7. DEXERYL [CHLORPHENAMINE MALEATE;DEXTROMETHORPHAN HYDROBROMIDE;GUAIFENE [Concomitant]
     Indication: DRY SKIN
     Dosage: UNK
     Route: 061
     Dates: start: 20131223
  8. EMLA [Concomitant]
     Active Substance: LIDOCAINE\PRILOCAINE
     Indication: PROPHYLAXIS
     Dosage: UNK
     Route: 061
     Dates: start: 20151005, end: 201604
  9. ZYRTEC [Concomitant]
     Active Substance: CETIRIZINE HYDROCHLORIDE
     Indication: ASTHMA
     Dosage: UNK
     Route: 048
     Dates: start: 20131028, end: 20131101
  10. NASONEX [Concomitant]
     Active Substance: MOMETASONE FUROATE
     Indication: ASTHMA
     Dosage: UNK
     Route: 048
     Dates: start: 20150910
  11. NASONEX [Concomitant]
     Active Substance: MOMETASONE FUROATE
     Indication: ASTHMA
     Dosage: UNK
     Route: 045
     Dates: start: 20140213, end: 20140313
  12. AERIUS [EBASTINE] [Concomitant]
     Active Substance: EBASTINE
     Indication: ASTHMA
     Dosage: UNK
     Route: 048
     Dates: start: 20150910
  13. PREDNISOLONE. [Concomitant]
     Active Substance: PREDNISOLONE
     Indication: INFLAMMATION
     Dosage: UNK
     Route: 048
     Dates: start: 20141006, end: 20150106
  14. CYAMEMAZINE [Concomitant]
     Active Substance: CYAMEMAZINE
     Indication: BEHAVIOURAL THERAPY
     Dosage: UNK
     Route: 048
     Dates: start: 20170206
  15. TRUSOPT [Concomitant]
     Active Substance: DORZOLAMIDE HYDROCHLORIDE
     Indication: EYE DISORDER
     Dosage: UNK
     Route: 050
     Dates: start: 201710
  16. POLARAMINE [Concomitant]
     Active Substance: DEXCHLORPHENIRAMINE MALEATE
     Dosage: UNK
     Dates: start: 20091102
  17. VENTOLINE [SALBUTAMOL] [Concomitant]
     Active Substance: ALBUTEROL SULFATE
     Indication: ASTHMA
     Dosage: UNK
     Route: 048
     Dates: start: 20140130, end: 20140302
  18. ZITHROMAX [Concomitant]
     Active Substance: AZITHROMYCIN DIHYDRATE
     Indication: LUNG DISORDER
     Dosage: UNK
     Route: 048
     Dates: start: 20130322, end: 20130325
  19. SINGULAIR [Concomitant]
     Active Substance: MONTELUKAST SODIUM
     Indication: RESPIRATORY DISORDER
     Dosage: UNK
     Route: 048
     Dates: start: 20130227, end: 20130228
  20. MALARONE [Concomitant]
     Active Substance: ATOVAQUONE\PROGUANIL HYDROCHLORIDE
     Indication: PARASITE ALLERGY
     Dosage: UNK
     Route: 048
     Dates: start: 20160627, end: 20160803

REACTIONS (4)
  - Hypersensitivity [Recovered/Resolved]
  - Pruritus [Recovered/Resolved]
  - Generalised oedema [Recovered/Resolved]
  - Rash [Recovered/Resolved]

NARRATIVE: CASE EVENT DATE: 20091026
